FAERS Safety Report 4709327-7 (Version None)
Quarter: 2005Q3

REPORT INFORMATION
  Report Type: 
  Country: None (occurrence: None)
  Receive Date: 20050708
  Receipt Date: 20050627
  Transmission Date: 20060218
  Serious: Yes (Death)
  Sender: FDA-Public Use
  Company Number: GB-JNJFOC-20050401538

PATIENT
  Sex: Male
  Weight: 98 kg

DRUGS (7)
  1. REMICADE [Suspect]
     Indication: RHEUMATOID ARTHRITIS
     Route: 042
  2. METHOTREXATE [Concomitant]
     Route: 065
  3. PREDNISOLONE [Concomitant]
  4. ARTHROTEC [Concomitant]
  5. ARTHROTEC [Concomitant]
  6. DIDRONEL [Concomitant]
  7. ACETAMINOPHEN [Concomitant]

REACTIONS (2)
  - MYOCARDIAL ISCHAEMIA [None]
  - VENTRICULAR HYPERTROPHY [None]
